FAERS Safety Report 12431691 (Version 1)
Quarter: 2016Q2

REPORT INFORMATION
  Report Type: Report from Study
  Country: AU (occurrence: AU)
  Receive Date: 20160603
  Receipt Date: 20160603
  Transmission Date: 20160815
  Serious: Yes (Death)
  Sender: FDA-Public Use
  Company Number: AU-INDICUS PHARMA-000421

PATIENT
  Age: 24 Year
  Sex: Female

DRUGS (9)
  1. NAPROXEN. [Suspect]
     Active Substance: NAPROXEN
  2. IBUPROFEN. [Suspect]
     Active Substance: IBUPROFEN
  3. FLUOXETINE [Suspect]
     Active Substance: FLUOXETINE HYDROCHLORIDE
  4. DIAZEPAM. [Suspect]
     Active Substance: DIAZEPAM
  5. TOPIRAMATE. [Suspect]
     Active Substance: TOPIRAMATE
  6. QUETIAPINE/QUETIAPINE FUMARATE [Suspect]
     Active Substance: QUETIAPINE FUMARATE
  7. PARACETAMOL [Suspect]
     Active Substance: ACETAMINOPHEN
  8. LAMOTRIGINE. [Suspect]
     Active Substance: LAMOTRIGINE
  9. METFORMIN [Suspect]
     Active Substance: METFORMIN HYDROCHLORIDE

REACTIONS (3)
  - Bezoar [Fatal]
  - Toxicity to various agents [Fatal]
  - Obstructive airways disorder [Fatal]
